FAERS Safety Report 7148987-0 (Version None)
Quarter: 2010Q4

REPORT INFORMATION
  Report Type: 
  Country: None (occurrence: None)
  Receive Date: 20101209
  Receipt Date: 20101202
  Transmission Date: 20110411
  Serious: Yes (Hospitalization)
  Sender: FDA-Public Use
  Company Number: US-US-EMD SERONO, INC.-234283J09USA

PATIENT
  Sex: Female
  Weight: 86 kg

DRUGS (9)
  1. REBIF [Suspect]
     Indication: MULTIPLE SCLEROSIS
     Route: 058
     Dates: start: 20090416
  2. DULCOLAX [Concomitant]
     Indication: CONSTIPATION
  3. METOPROLOL [Concomitant]
     Indication: HYPERTENSION
  4. BACLOFEN [Concomitant]
     Indication: MUSCLE SPASMS
  5. DETROL [Concomitant]
     Indication: URINARY INCONTINENCE
  6. DETROL [Concomitant]
  7. CYMBALTA [Concomitant]
     Indication: DEPRESSION
  8. AMLODIPINE [Concomitant]
     Indication: HYPERTENSION
  9. LYRICA [Concomitant]
     Indication: PAIN IN EXTREMITY

REACTIONS (4)
  - HEART RATE INCREASED [None]
  - HYPERTENSION [None]
  - MUSCULAR WEAKNESS [None]
  - PARAESTHESIA [None]
